FAERS Safety Report 15473833 (Version 1)
Quarter: 2018Q4

REPORT INFORMATION
  Report Type: Report from Study
  Country: BE (occurrence: BE)
  Receive Date: 20181008
  Receipt Date: 20181008
  Transmission Date: 20190205
  Serious: Yes (Hospitalization, Disabling, Other)
  Sender: FDA-Public Use
  Company Number: BE-SA-2016SA232550

PATIENT
  Age: 70 Year
  Sex: Male
  Weight: 87 kg

DRUGS (18)
  1. INSULIN GLARGINE [Suspect]
     Active Substance: INSULIN GLARGINE
     Dosage: 14 DF,QD
     Route: 051
     Dates: start: 20160702
  2. TRADONAL [Concomitant]
     Active Substance: TRAMADOL HYDROCHLORIDE
     Indication: PAIN
     Dosage: UNK UNK,UNK
     Route: 065
     Dates: start: 20161008, end: 20170922
  3. INSULIN GLARGINE [Suspect]
     Active Substance: INSULIN GLARGINE
     Dosage: 14 DF,QD
     Route: 051
     Dates: start: 20160703
  4. ELIQUIS [Concomitant]
     Active Substance: APIXABAN
     Indication: CEREBROVASCULAR ACCIDENT
     Dosage: UNK UNK,UNK
     Route: 065
     Dates: start: 20141123, end: 20170922
  5. PERINDOPRIL [Concomitant]
     Active Substance: PERINDOPRIL
     Indication: NEPHROPATHY
     Dosage: UNK UNK,UNK
     Route: 065
  6. NOVORAPID [Suspect]
     Active Substance: INSULIN ASPART
     Dosage: UNK UNK,TID/ 22-12-14 THREE TIMES DAILY
     Route: 065
     Dates: start: 20160703
  7. ZOLPIDEM [Concomitant]
     Active Substance: ZOLPIDEM\ZOLPIDEM TARTRATE
     Indication: SLEEP DISORDER
     Dosage: UNK UNK,UNK
     Route: 065
  8. CONTRAMAL [Concomitant]
     Active Substance: TRAMADOL HYDROCHLORIDE
     Indication: PAIN
     Dosage: UNK UNK,UNK
     Route: 065
     Dates: start: 20161003, end: 20170922
  9. INSULIN GLARGINE [Suspect]
     Active Substance: INSULIN GLARGINE
     Indication: TYPE 2 DIABETES MELLITUS
     Dosage: 16 IU,UNK
     Route: 051
     Dates: start: 20160704
  10. ATOZET [Concomitant]
     Active Substance: ATORVASTATIN CALCIUM\EZETIMIBE
     Indication: HYPERCHOLESTEROLAEMIA
     Dosage: UNK UNK,UNK
     Route: 065
  11. EZETROL [Concomitant]
     Active Substance: EZETIMIBE
     Indication: HYPERCHOLESTEROLAEMIA
     Dosage: UNK UNK,UNK
     Route: 065
     Dates: start: 20160928, end: 20170922
  12. CIPROFLOXACIN. [Concomitant]
     Active Substance: CIPROFLOXACIN
     Indication: URINARY TRACT INFECTION
  13. DEXPANTHENOL. [Concomitant]
     Active Substance: DEXPANTHENOL
     Indication: PROPHYLAXIS AGAINST GASTROINTESTINAL ULCER
     Dosage: UNK UNK,UNK
     Route: 065
     Dates: start: 201708, end: 20170922
  14. INSULIN GLARGINE [Suspect]
     Active Substance: INSULIN GLARGINE
     Indication: TYPE 2 DIABETES MELLITUS
     Dosage: 14 DF,QD
     Route: 051
     Dates: start: 20160701
  15. LANOXIN [Concomitant]
     Active Substance: DIGOXIN
     Indication: ATRIAL FIBRILLATION
     Dosage: UNK UNK,UNK
     Route: 065
  16. BISOPROLOL [Concomitant]
     Active Substance: BISOPROLOL
     Indication: HYPERTENSION
     Dosage: UNK UNK,UNK
     Route: 065
  17. CIPROFLOXACIN. [Concomitant]
     Active Substance: CIPROFLOXACIN
     Indication: INFECTION
     Dosage: UNK UNK,UNK
     Route: 065
     Dates: start: 20161031, end: 20161201
  18. ASAFLOW [Concomitant]
     Active Substance: ASPIRIN
     Indication: THROMBOSIS PROPHYLAXIS
     Dosage: UNK UNK,UNK
     Route: 065
     Dates: start: 201708, end: 20170922

REACTIONS (13)
  - Staphylococcal infection [Recovered/Resolved]
  - Constipation [Recovered/Resolved]
  - Wound complication [Recovered/Resolved with Sequelae]
  - Enterobacter infection [Recovered/Resolved]
  - Klebsiella infection [Recovered/Resolved]
  - Urinary bladder adenoma [Recovered/Resolved]
  - Radial nerve compression [Recovered/Resolved]
  - Peripheral ischaemia [Recovered/Resolved with Sequelae]
  - Microcytic anaemia [Recovered/Resolved]
  - Hypotension [Recovered/Resolved]
  - Skin ulcer [Recovered/Resolved with Sequelae]
  - Urinary tract infection [Recovered/Resolved]
  - Intermittent claudication [Recovered/Resolved with Sequelae]

NARRATIVE: CASE EVENT DATE: 2016
